APPROVED DRUG PRODUCT: HYDROCODONE BITARTRATE AND ACETAMINOPHEN
Active Ingredient: ACETAMINOPHEN; HYDROCODONE BITARTRATE
Strength: 325MG/15ML;7.5MG/15ML
Dosage Form/Route: SOLUTION;ORAL
Application: A211023 | Product #001 | TE Code: AA
Applicant: WES PHARMA INC
Approved: Mar 8, 2019 | RLD: No | RS: Yes | Type: RX